FAERS Safety Report 15468306 (Version 1)
Quarter: 2018Q4

REPORT INFORMATION
  Report Type: Spontaneous
  Country: US (occurrence: US)
  Receive Date: 20181001
  Receipt Date: 20181001
  Transmission Date: 20190204
  Serious: No
  Sender: FDA-Public Use
  Company Number: None

PATIENT
  Age: 67 Year
  Sex: Female

DRUGS (1)
  1. STELARA [Suspect]
     Active Substance: USTEKINUMAB
     Dates: start: 20161208, end: 20180201

REACTIONS (3)
  - Fall [None]
  - Injury [None]
  - Wrist fracture [None]

NARRATIVE: CASE EVENT DATE: 20180201
